FAERS Safety Report 11220483 (Version 2)
Quarter: 2015Q3

REPORT INFORMATION
  Report Type: Report from Study
  Country: DE (occurrence: DE)
  Receive Date: 20150626
  Receipt Date: 20150706
  Transmission Date: 20151125
  Serious: Yes (Other)
  Sender: FDA-Public Use
  Company Number: ALCN2015DE003856

PATIENT
  Age: 84 Year
  Sex: Female

DRUGS (2)
  1. TRAVOPROST/TIMOLOL MALEATE A-TTIPQ+EYDR+0.004/0.5 [Suspect]
     Active Substance: TIMOLOL MALEATE\TRAVOPROST
     Indication: OPEN ANGLE GLAUCOMA
     Dosage: 1 DF, QD
  2. BRINZOLAMIDE/BRIMONIDINE TARTRATE [Suspect]
     Active Substance: BRIMONIDINE TARTRATE\BRINZOLAMIDE
     Indication: OPEN ANGLE GLAUCOMA
     Dosage: 2 DF, QD
     Dates: start: 20150218

REACTIONS (1)
  - Drug ineffective [Unknown]
